FAERS Safety Report 7859102 (Version 4)
Quarter: 2012Q4

REPORT INFORMATION
  Report Type: 
  Country: CA (occurrence: CA)
  Receive Date: 20110316
  Receipt Date: 20121015
  Transmission Date: 20130627
  Serious: Yes (Other)
  Sender: FDA-Public Use
  Company Number: PHHY2011CA17835

PATIENT
  Sex: Female

DRUGS (2)
  1. SANDOSTATIN LAR [Suspect]
     Indication: SMALL INTESTINE CARCINOMA
     Dosage: 30 mg, every 4 weeks
     Route: 030
     Dates: start: 20080128, end: 20120328
  2. SANDOSTATIN LAR [Suspect]
     Dosage: 30 mg, BIW
     Route: 030
     Dates: start: 20120410

REACTIONS (3)
  - Upper limb fracture [Unknown]
  - Pain [Unknown]
  - Constipation [Not Recovered/Not Resolved]
